FAERS Safety Report 9829065 (Version 2)
Quarter: 2014Q2

REPORT INFORMATION
  Report Type: Spontaneous
  Country: FR (occurrence: FR)
  Receive Date: 20140119
  Receipt Date: 20140610
  Transmission Date: 20141212
  Serious: Yes (Hospitalization)
  Sender: FDA-Public Use
  Company Number: FR-ASTRAZENECA-2014SE02555

PATIENT
  Age: 52 Year
  Sex: Female

DRUGS (12)
  1. INEXIUM [Suspect]
     Route: 048
     Dates: start: 20131025
  2. CORTANCYL [Suspect]
     Route: 048
  3. CORTANCYL [Suspect]
     Route: 048
     Dates: end: 20131025
  4. HYDROCORTISONE ROUSSEL [Suspect]
     Route: 048
     Dates: start: 20131025
  5. CALCIUM VITAMINE D3 [Concomitant]
     Dosage: 500/200, 2 DF, EVERY DAY
     Route: 048
  6. RISEDRONATE MONOSODIQUE HEMIPENTAHYDRATE [Concomitant]
     Route: 048
  7. KARDEGIC [Concomitant]
     Route: 048
  8. TAHOR [Concomitant]
  9. LANZOR [Concomitant]
     Route: 048
     Dates: end: 20131025
  10. STILNOX [Concomitant]
     Route: 048
  11. ALPRAZOLAM [Concomitant]
     Route: 048
  12. LAMALINE [Concomitant]
     Route: 048
     Dates: start: 20131025

REACTIONS (2)
  - Myopathy [Recovering/Resolving]
  - Face oedema [Not Recovered/Not Resolved]
